FAERS Safety Report 7324887-8 (Version None)
Quarter: 2011Q1

REPORT INFORMATION
  Report Type: 
  Country: None (occurrence: None)
  Receive Date: 20110301
  Receipt Date: 20110225
  Transmission Date: 20110831
  Serious: Yes (Other)
  Sender: FDA-Public Use
  Company Number: BR-ABBOTT-11P-020-0707913-00

PATIENT
  Age: 24 Year
  Sex: Male

DRUGS (4)
  1. DEPAKENE [Concomitant]
     Indication: PRODUCT USED FOR UNKNOWN INDICATION
     Dates: start: 19970623
  2. OXCARBAZEPINE [Concomitant]
     Indication: PRODUCT USED FOR UNKNOWN INDICATION
     Route: 048
  3. VALPROATE SODIUM [Suspect]
     Route: 048
  4. VALPROATE SODIUM [Suspect]
     Indication: CONVULSION
     Dates: start: 19970623

REACTIONS (3)
  - CONVULSION [None]
  - DRUG INEFFECTIVE [None]
  - PRODUCT QUALITY ISSUE [None]
